FAERS Safety Report 8037693-6 (Version None)
Quarter: 2012Q1

REPORT INFORMATION
  Report Type: 
  Country: None (occurrence: None)
  Receive Date: 20120111
  Receipt Date: 20120103
  Transmission Date: 20120608
  Serious: Yes (Other)
  Sender: FDA-Public Use
  Company Number: FR-ASTRAZENECA-2011SE75973

PATIENT
  Age: 29376 Day
  Sex: Female

DRUGS (7)
  1. GLUCOVANCE [Suspect]
     Route: 048
     Dates: end: 20110915
  2. IRBESARTAN AND HYDROCHLOROTHIAZIDE [Suspect]
     Route: 048
     Dates: end: 20110915
  3. LORAZEPAM [Suspect]
     Route: 048
  4. METHOTREXATE [Suspect]
     Dosage: 10 TO 15 MG PER WEEK FOR AROUND 10 YEARS - ESTIMATED TOTAL DOSE RECEIVED: MORE THAN 3 GRAMS
     Route: 048
     Dates: end: 20110915
  5. ACETAMINOPHEN [Suspect]
     Route: 048
  6. OMEPRAZOLE [Suspect]
     Dosage: 10 MG, DAILY, TREATMENT STARTED FOR MORE THAN 3 YEARS
     Route: 048
  7. ARTHROTEC [Suspect]
     Route: 048
     Dates: end: 20110915

REACTIONS (1)
  - HEPATIC FIBROSIS [None]
